FAERS Safety Report 7597118-1 (Version None)
Quarter: 2011Q3

REPORT INFORMATION
  Report Type: 
  Country: None (occurrence: None)
  Receive Date: 20110708
  Receipt Date: 20110706
  Transmission Date: 20111222
  Serious: Yes (Other)
  Sender: FDA-Public Use
  Company Number: US-PFIZER INC-2011152909

PATIENT
  Sex: Female

DRUGS (2)
  1. DILANTIN [Suspect]
     Indication: CONVULSION
     Dosage: 500 MG, DAILY
     Route: 048
  2. KLONOPIN [Suspect]
     Indication: CONVULSION
     Dosage: 0.5 MG, DAILY
     Route: 048

REACTIONS (2)
  - ANXIETY [None]
  - DEPRESSED MOOD [None]
